FAERS Safety Report 9068753 (Version 2)
Quarter: 2013Q1

REPORT INFORMATION
  Report Type: Spontaneous
  Country: US (occurrence: US)
  Receive Date: 20130215
  Receipt Date: 20130329
  Transmission Date: 20140127
  Serious: Yes (Hospitalization)
  Sender: FDA-Public Use
  Company Number: US-PFIZER INC-2013060026

PATIENT
  Age: 41 Year
  Sex: Female
  Weight: 104 kg

DRUGS (7)
  1. LYRICA [Suspect]
     Indication: RESTLESS LEGS SYNDROME
     Dosage: 75 MG, 1X/DAY AT NIGHT
     Dates: start: 2011
  2. LYRICA [Suspect]
     Dosage: 75 MG, 2X/DAY
     Dates: end: 201302
  3. HUMALOG [Concomitant]
     Indication: DIABETES MELLITUS
     Dosage: UNK
  4. VICTOZA [Concomitant]
     Indication: DIABETES MELLITUS
     Dosage: 1.8 MG, 1X/DAY AT NIGHT
  5. LEVEMIR [Concomitant]
     Indication: DIABETES MELLITUS
     Dosage: 50 UNITS MORNING AND 30 UNITS AT NIGHT, 2X/DAY
  6. LORTAB [Concomitant]
     Indication: BACK DISORDER
     Dosage: 10/325 MG, EVERY EIGHT HOURS
  7. ULTRAM [Concomitant]
     Indication: BACK DISORDER
     Dosage: 6 MG, 1X/DAY

REACTIONS (2)
  - Chest pain [Unknown]
  - Pain in extremity [Not Recovered/Not Resolved]
